APPROVED DRUG PRODUCT: MIACALCIN
Active Ingredient: CALCITONIN SALMON
Strength: 100 IU/ML **Federal Register determination that product was not discontinued or withdrawn for safety or effectiveness reasons**
Dosage Form/Route: INJECTABLE;INJECTION
Application: N017808 | Product #001
Applicant: MYLAN IRELAND LTD
Approved: Jul 3, 1986 | RLD: Yes | RS: No | Type: DISCN